FAERS Safety Report 20359895 (Version 3)
Quarter: 2024Q1

REPORT INFORMATION
  Report Type: Report from Study
  Country: DE (occurrence: DE)
  Receive Date: 20220121
  Receipt Date: 20240305
  Transmission Date: 20240410
  Serious: Yes (Hospitalization, Other)
  Sender: FDA-Public Use
  Company Number: DE-TAKEDA-2022TUS001926

PATIENT
  Age: 80 Year
  Sex: Female

DRUGS (2)
  1. HUMAN IMMUNOGLOBULIN G [Suspect]
     Active Substance: HUMAN IMMUNOGLOBULIN G
     Indication: Primary immunodeficiency syndrome
     Dosage: 8 GRAM, 1/WEEK
     Route: 058
     Dates: start: 20180321
  2. HUMAN IMMUNOGLOBULIN G [Suspect]
     Active Substance: HUMAN IMMUNOGLOBULIN G
     Indication: Immunodeficiency common variable

REACTIONS (6)
  - Dementia [Recovered/Resolved]
  - Fall [Unknown]
  - Hip fracture [Unknown]
  - Tension [Recovered/Resolved]
  - Product quality issue [Unknown]
  - Injection site induration [Recovered/Resolved]

NARRATIVE: CASE EVENT DATE: 20220110
